FAERS Safety Report 8431504-2 (Version None)
Quarter: 2012Q2

REPORT INFORMATION
  Report Type: 
  Country: None (occurrence: None)
  Receive Date: 20120613
  Receipt Date: 20120601
  Transmission Date: 20120825
  Serious: Yes (Hospitalization, Other)
  Sender: FDA-Public Use
  Company Number: CA-JNJFOC-20120601756

PATIENT
  Sex: Female
  Weight: 63 kg

DRUGS (5)
  1. REMICADE [Suspect]
     Indication: RHEUMATOID ARTHRITIS
     Route: 042
     Dates: start: 20120104
  2. METHOTREXATE [Suspect]
     Indication: PRODUCT USED FOR UNKNOWN INDICATION
     Route: 065
  3. METHOTREXATE [Suspect]
     Route: 065
  4. ATACAND HCT [Concomitant]
     Route: 065
  5. DIURETICS [Concomitant]
     Route: 065

REACTIONS (10)
  - RENAL FAILURE ACUTE [None]
  - HYPOKALAEMIA [None]
  - HYPERKALAEMIA [None]
  - EXTRASYSTOLES [None]
  - ANAEMIA [None]
  - DIABETES MELLITUS [None]
  - HYPERGLYCAEMIA [None]
  - STOMATITIS [None]
  - TACHYCARDIA [None]
  - ADRENAL DISORDER [None]
